FAERS Safety Report 6632165-5 (Version None)
Quarter: 2010Q1

REPORT INFORMATION
  Report Type: 
  Country: None (occurrence: None)
  Receive Date: 20100312
  Receipt Date: 20100302
  Transmission Date: 20100710
  Serious: Yes (Other)
  Sender: FDA-Public Use
  Company Number: US-MYLANLABS-2010S1002307

PATIENT
  Sex: Female

DRUGS (13)
  1. CLONAZEPAM [Suspect]
     Indication: ANXIETY
     Route: 048
     Dates: start: 20040701
  2. CLONAZEPAM [Suspect]
     Indication: OBSESSIVE-COMPULSIVE DISORDER
     Route: 048
     Dates: start: 20040701
  3. CLONAZEPAM [Suspect]
     Route: 048
  4. CLONAZEPAM [Suspect]
     Route: 048
  5. CLONAZEPAM [Suspect]
     Route: 048
     Dates: start: 20090101, end: 20090101
  6. CLONAZEPAM [Suspect]
     Route: 048
     Dates: start: 20090101, end: 20090101
  7. CLONAZEPAM [Suspect]
     Route: 048
     Dates: start: 20090101
  8. CLONAZEPAM [Suspect]
     Route: 048
     Dates: start: 20090101
  9. CLONAZEPAM [Suspect]
     Route: 048
  10. CLONAZEPAM [Suspect]
     Route: 048
  11. REMERON [Concomitant]
  12. VITAMINS [Concomitant]
  13. CALCIUM [Concomitant]

REACTIONS (7)
  - ANXIETY [None]
  - DECREASED APPETITE [None]
  - DEPRESSION [None]
  - DRUG DEPENDENCE [None]
  - DRUG TOLERANCE [None]
  - DRUG WITHDRAWAL SYNDROME [None]
  - LETHARGY [None]
